FAERS Safety Report 17400878 (Version 1)
Quarter: 2020Q1

REPORT INFORMATION
  Report Type: Spontaneous
  Country: US (occurrence: US)
  Receive Date: 20200211
  Receipt Date: 20200211
  Transmission Date: 20200409
  Serious: No
  Sender: FDA-Public Use
  Company Number: US-ACCORD-109755

PATIENT
  Age: 48 Year
  Sex: Female

DRUGS (2)
  1. BUSPIRONE [Suspect]
     Active Substance: BUSPIRONE HYDROCHLORIDE
     Indication: ANXIETY
     Dosage: STRENGTH: 30 MG
     Route: 048
     Dates: start: 2018
  2. SPIRONOLACTONE. [Concomitant]
     Active Substance: SPIRONOLACTONE
     Dosage: STRENGTH: 50 MG

REACTIONS (3)
  - Breast tenderness [Not Recovered/Not Resolved]
  - Breast discharge [Not Recovered/Not Resolved]
  - Breast pain [Not Recovered/Not Resolved]
